FAERS Safety Report 6933866-1 (Version None)
Quarter: 2010Q3

REPORT INFORMATION
  Report Type: 
  Country: None (occurrence: None)
  Receive Date: 20100820
  Receipt Date: 20100816
  Transmission Date: 20110219
  Serious: Yes (Death, Hospitalization)
  Sender: FDA-Public Use
  Company Number: US-ROCHE-707513

PATIENT
  Sex: Male

DRUGS (13)
  1. MYCOPHENOLATE MOFETIL [Suspect]
     Dosage: FORM PER PROTOCOL.
     Route: 048
     Dates: start: 20090107, end: 20100520
  2. MYCOPHENOLATE MOFETIL [Suspect]
     Route: 048
     Dates: start: 20100524, end: 20100527
  3. BELATACEPT [Suspect]
     Dosage: DOSING REGIMEN BLINDED.
     Route: 042
     Dates: start: 20090106, end: 20100429
  4. BLINDED BASILIXIMAB [Suspect]
     Route: 042
     Dates: start: 20090106, end: 20090111
  5. KEPPRA [Concomitant]
     Dates: start: 20090127
  6. ACTIGALL [Concomitant]
     Dates: start: 20090211
  7. DULCOLAX [Concomitant]
     Dates: start: 20100204, end: 20100519
  8. NEURONTIN [Concomitant]
     Dates: start: 20100401
  9. GENGRAF [Concomitant]
  10. FLOMAX [Concomitant]
  11. PRILOSEC [Concomitant]
     Dates: start: 20100514, end: 20100519
  12. BISACODYL [Concomitant]
     Dates: start: 20100204, end: 20100519
  13. ULTRAM [Concomitant]

REACTIONS (3)
  - DEHYDRATION [None]
  - HEPATIC CANCER METASTATIC [None]
  - PLEURAL EFFUSION [None]
